FAERS Safety Report 11138299 (Version 3)
Quarter: 2015Q3

REPORT INFORMATION
  Report Type: Spontaneous
  Country: HU (occurrence: HU)
  Receive Date: 20150526
  Receipt Date: 20150709
  Transmission Date: 20151125
  Serious: Yes (Hospitalization, Other)
  Sender: FDA-Public Use
  Company Number: HU-AMGEN-HUNSP2015046100

PATIENT
  Age: 12 Year
  Sex: Female
  Weight: 46 kg

DRUGS (2)
  1. ENBREL [Suspect]
     Active Substance: ETANERCEPT
     Dosage: 18.4 MG, SINGLE DOSE
     Route: 058
     Dates: start: 20150503
  2. ENBREL [Suspect]
     Active Substance: ETANERCEPT
     Indication: JUVENILE IDIOPATHIC ARTHRITIS
     Dosage: 18.4 MG, 2X/WEEK
     Route: 058
     Dates: start: 20141215, end: 20150330

REACTIONS (6)
  - Self injurious behaviour [Unknown]
  - Wound secretion [Recovering/Resolving]
  - Rash erythematous [Recovering/Resolving]
  - Excoriation [Recovering/Resolving]
  - Mental disorder [Recovering/Resolving]
  - Rash generalised [Recovering/Resolving]

NARRATIVE: CASE EVENT DATE: 201502
